FAERS Safety Report 7635539-9 (Version None)
Quarter: 2011Q3

REPORT INFORMATION
  Report Type: 
  Country: None (occurrence: None)
  Receive Date: 20110726
  Receipt Date: 20110714
  Transmission Date: 20111222
  Serious: Yes (Other)
  Sender: FDA-Public Use
  Company Number: US-NOVOPROD-331848

PATIENT
  Age: 44 Year
  Sex: Male
  Weight: 127.8 kg

DRUGS (7)
  1. NITROGLYCERIN [Concomitant]
     Indication: CHEST PAIN
  2. NOVOLOG [Suspect]
     Indication: DIABETES MELLITUS
     Dosage: 250 IU, QD
     Route: 058
     Dates: start: 20090505
  3. INSPRA [Concomitant]
     Indication: HYPERALDOSTERONISM
     Dosage: UNK
  4. CLONIDINE [Concomitant]
     Indication: PRODUCT USED FOR UNKNOWN INDICATION
  5. ADAVIN [Concomitant]
     Indication: PRODUCT USED FOR UNKNOWN INDICATION
  6. NOVOLOG [Suspect]
     Indication: DIABETES MELLITUS
     Dosage: 250 IU, QD
     Route: 058
     Dates: start: 20100101
  7. PERCOCET [Concomitant]
     Indication: PAIN

REACTIONS (3)
  - INTENTIONAL DRUG MISUSE [None]
  - SUICIDAL IDEATION [None]
  - BLOOD GLUCOSE INCREASED [None]
